FAERS Safety Report 18853269 (Version 1)
Quarter: 2021Q1

REPORT INFORMATION
  Report Type: Spontaneous
  Country: US (occurrence: US)
  Receive Date: 20210205
  Receipt Date: 20210205
  Transmission Date: 20210420
  Serious: Yes (Other)
  Sender: FDA-Public Use
  Company Number: US-SA-2021SA033491

PATIENT
  Age: 68 Year
  Sex: Female

DRUGS (2)
  1. DUPIXENT [Suspect]
     Active Substance: DUPILUMAB
     Indication: DERMATITIS ATOPIC
     Dosage: UNK UNK, TOTAL
     Dates: start: 20210106, end: 20210106
  2. DUPIXENT [Suspect]
     Active Substance: DUPILUMAB
     Dosage: MAINTENANCE DOSE
     Dates: start: 20210113

REACTIONS (4)
  - Nail discolouration [Unknown]
  - Dyspnoea [Recovered/Resolved]
  - Atrial fibrillation [Unknown]
  - Product use issue [Unknown]

NARRATIVE: CASE EVENT DATE: 20210106
